FAERS Safety Report 5284681-9 (Version None)
Quarter: 2007Q2

REPORT INFORMATION
  Report Type: 
  Country: None (occurrence: None)
  Receive Date: 20070403
  Receipt Date: 20070323
  Transmission Date: 20071010
  Serious: Yes (Other)
  Sender: FDA-Public Use
  Company Number: HQWYE852115FEB07

PATIENT
  Sex: Female
  Weight: 66 kg

DRUGS (3)
  1. MYLOTARG [Suspect]
     Indication: ACUTE MYELOID LEUKAEMIA RECURRENT
     Route: 041
     Dates: start: 20060523, end: 20060523
  2. MYLOTARG [Suspect]
     Route: 041
     Dates: start: 20060606, end: 20060606
  3. DIFLUCAN [Concomitant]
     Indication: PROPHYLAXIS
     Dosage: 200MG/DAY
     Route: 048
     Dates: start: 20060523

REACTIONS (2)
  - LOSS OF CONSCIOUSNESS [None]
  - SEPSIS [None]
